FAERS Safety Report 16130010 (Version 1)
Quarter: 2019Q1

REPORT INFORMATION
  Report Type: Spontaneous
  Country: FR (occurrence: FR)
  Receive Date: 20190328
  Receipt Date: 20190328
  Transmission Date: 20190418
  Serious: Yes (Disabling)
  Sender: FDA-Public Use
  Company Number: FR-TEVA-513978ISR

PATIENT
  Age: 54 Year
  Sex: Male

DRUGS (12)
  1. CYTARABINE EBEWE [Suspect]
     Active Substance: CYTARABINE
     Indication: T-CELL LYMPHOMA
     Dosage: CHEMOTHERAPY
     Route: 037
     Dates: start: 20121228, end: 20130107
  2. KIDROLASE [Suspect]
     Active Substance: ASPARAGINASE
     Route: 037
     Dates: start: 20130107, end: 20130107
  3. METHOTREXATE MYLAN [Suspect]
     Active Substance: METHOTREXATE SODIUM
     Indication: T-CELL LYMPHOMA
     Dosage: CHEMOTHERAPY
     Route: 037
     Dates: start: 20121228, end: 20130107
  4. PRIMPERAN [Concomitant]
     Active Substance: METOCLOPRAMIDE HYDROCHLORIDE
  5. VINCRISTINE TEVA [Suspect]
     Active Substance: VINCRISTINE
     Indication: T-CELL LYMPHOMA
     Dosage: CHEMOTHERAPY
     Route: 042
     Dates: start: 20121231, end: 20130106
  6. VINCRISTINE TEVA [Suspect]
     Active Substance: VINCRISTINE
     Dosage: CHEMOTHERAPY
     Route: 037
     Dates: start: 20130107, end: 20130107
  7. VINCRISTINE TEVA [Suspect]
     Active Substance: VINCRISTINE
     Dosage: CHEMOTHERAPY
     Route: 042
     Dates: start: 20130108, end: 20130121
  8. METHOTREXATE MYLAN [Suspect]
     Active Substance: METHOTREXATE SODIUM
     Route: 042
     Dates: start: 201304
  9. ZOLPIDEM [Concomitant]
     Active Substance: ZOLPIDEM\ZOLPIDEM TARTRATE
  10. KIDROLASE [Suspect]
     Active Substance: ASPARAGINASE
     Route: 042
     Dates: start: 20130108, end: 201302
  11. CERUBIDINE [Suspect]
     Active Substance: DAUNORUBICIN HYDROCHLORIDE
     Indication: T-CELL LYMPHOMA
     Dosage: CHEMOTHERAPY
     Route: 042
     Dates: start: 20121231, end: 20130115
  12. ENDOXAN [Suspect]
     Active Substance: CYCLOPHOSPHAMIDE
     Indication: T-CELL LYMPHOMA
     Dosage: CHEMOTHERAPY
     Route: 042
     Dates: start: 20121231, end: 20130115

REACTIONS (4)
  - Balance disorder [Recovered/Resolved]
  - Hypoaesthesia [Recovered/Resolved]
  - Paraesthesia [Recovered/Resolved]
  - Neuropathy peripheral [Recovering/Resolving]

NARRATIVE: CASE EVENT DATE: 201302
